FAERS Safety Report 23611401 (Version 1)
Quarter: 2024Q1

REPORT INFORMATION
  Report Type: Report from Study
  Country: CA (occurrence: CA)
  Receive Date: 20240308
  Receipt Date: 20240308
  Transmission Date: 20240410
  Serious: Yes (Death)
  Sender: FDA-Public Use
  Company Number: CA-ABBVIE-5670393

PATIENT
  Age: 72 Year
  Sex: Male

DRUGS (1)
  1. LUPRON DEPOT [Suspect]
     Active Substance: LEUPROLIDE ACETATE
     Indication: Prostate cancer
     Dosage: START DATE : PAST 7 TO 8 YEARS
     Route: 030
     Dates: start: 2016, end: 20231110

REACTIONS (2)
  - Death [Fatal]
  - Movement disorder [Unknown]

NARRATIVE: CASE EVENT DATE: 20240108
